FAERS Safety Report 9278281 (Version 1)
Quarter: 2012Q4

REPORT INFORMATION
  Report Type: Spontaneous
  Country: US (occurrence: None)
  Receive Date: 20121109
  Receipt Date: 20121109
  Transmission Date: 20130627
  Serious: Yes (Death, Hospitalization)
  Sender: FDA-Public Use
  Company Number: 2011S1000731

PATIENT
  Age: 78 Year
  Sex: Female
  Weight: 150 kg

DRUGS (9)
  1. CUBICIN [Suspect]
     Indication: PROSTHESIS RELATED INFECTION
     Dosage: IVPB
     Route: 042
     Dates: start: 20110801, end: 20110921
  2. XIFAXAN [Concomitant]
  3. MORPHINE [Concomitant]
  4. SYNTHROID [Concomitant]
  5. CARAFATE [Concomitant]
  6. ANTIBIOTICS [Concomitant]
  7. ANTIARRHYTHMICS, CLASS I AND III [Concomitant]
  8. NSAID^S [Concomitant]
  9. ACE INHIBITOR NOS [Concomitant]

REACTIONS (1)
  - Eosinophilic pneumonia [None]
